FAERS Safety Report 10277263 (Version 2)
Quarter: 2014Q3

REPORT INFORMATION
  Report Type: Not Available
  Country: FR (occurrence: FR)
  Receive Date: 20140703
  Receipt Date: 20140919
  Transmission Date: 20150326
  Serious: Yes (Hospitalization, Other)
  Sender: FDA-Public Use
  Company Number: FR-NAPPMUNDI-GBR-2014-0018977

PATIENT
  Age: 64 Year
  Sex: Female

DRUGS (5)
  1. DAFALGAN [Concomitant]
     Active Substance: ACETAMINOPHEN
  2. OXYCONTIN [Suspect]
     Active Substance: OXYCODONE HYDROCHLORIDE
     Dosage: UNK
     Dates: start: 20131204, end: 20131221
  3. DUROGESIC [Concomitant]
     Active Substance: FENTANYL
     Dosage: 25 MCG, Q72H
     Route: 062
  4. LYRICA [Concomitant]
     Active Substance: PREGABALIN
     Indication: PRODUCT USED FOR UNKNOWN INDICATION
     Dosage: 50 MG, TID
  5. OXYCONTIN [Suspect]
     Active Substance: OXYCODONE HYDROCHLORIDE
     Indication: PAIN
     Dosage: 5 MG, UNK
     Route: 048
     Dates: start: 20140204

REACTIONS (4)
  - Oxygen saturation decreased [Recovered/Resolved]
  - Tachycardia [Recovered/Resolved]
  - Hypercapnia [Recovered/Resolved]
  - Somnolence [Recovered/Resolved]

NARRATIVE: CASE EVENT DATE: 20140225
